FAERS Safety Report 5365417-X (Version None)
Quarter: 2007Q2

REPORT INFORMATION
  Report Type: 
  Country: None (occurrence: None)
  Receive Date: 20070621
  Receipt Date: 20070614
  Transmission Date: 20071010
  Serious: Yes (Death)
  Sender: FDA-Public Use
  Company Number: IT-ELI_LILLY_AND_COMPANY-IT200706003693

PATIENT
  Sex: Female

DRUGS (5)
  1. ALIMTA [Suspect]
     Indication: PLEURAL MESOTHELIOMA
  2. CISPLATIN [Concomitant]
     Indication: PLEURAL MESOTHELIOMA
  3. FOLIC ACID [Concomitant]
     Indication: PREMEDICATION
  4. VITAMIN B-12 [Concomitant]
     Indication: PREMEDICATION
  5. CORTICOSTEROIDS [Concomitant]
     Indication: PREMEDICATION

REACTIONS (1)
  - PANCYTOPENIA [None]
